FAERS Safety Report 4328074-7 (Version None)
Quarter: 2004Q1

REPORT INFORMATION
  Report Type: 
  Country: None (occurrence: None)
  Receive Date: 20040325
  Receipt Date: 20040311
  Transmission Date: 20041129
  Serious: Yes (Hospitalization)
  Sender: FDA-Public Use
  Company Number: 2004012727

PATIENT
  Age: 31 Year
  Sex: Male
  Weight: 60 kg

DRUGS (10)
  1. ZITHROMAX [Suspect]
     Indication: PHARYNGITIS
     Dosage: 500 MG (DAILY), ORAL
     Route: 048
     Dates: start: 20040221, end: 20040221
  2. GALENIC /PANIPENEM/BETAMIPRON/ (BETAMIPRON, PANIPENEM) [Suspect]
     Indication: ILL-DEFINED DISORDER
     Dates: start: 20040201
  3. CONTRAST MEDIA [Suspect]
     Indication: ILL-DEFINED DISORDER
  4. LOXOPROFEN SODIUM (LOXOPROFEN SODIUM) [Concomitant]
  5. SERRAPEPTASE (SERRAPEPTASE) [Concomitant]
  6. SODIUM GUALENATE (SODIUM GUALENATE) [Concomitant]
  7. ALL OTHER THERAPEUTIC PRODUCTS [Concomitant]
  8. FAROPENEM SODIUM (FAROPENEM SODIUM) [Concomitant]
  9. SERRAPEPTASE (SERRAPEPTASE) [Concomitant]
  10. ROXITHROMYCIN (ROXITHROMYCIN) [Concomitant]

REACTIONS (15)
  - ABDOMINAL PAIN [None]
  - ALANINE AMINOTRANSFERASE INCREASED [None]
  - APHTHOUS STOMATITIS [None]
  - ASPARTATE AMINOTRANSFERASE INCREASED [None]
  - DEHYDRATION [None]
  - DRUG INEFFECTIVE [None]
  - EPIGLOTTIS ULCER [None]
  - ERYTHEMA [None]
  - FEELING COLD [None]
  - GAMMA-GLUTAMYLTRANSFERASE INCREASED [None]
  - GASTRITIS [None]
  - HEPATIC ENZYME INCREASED [None]
  - LARYNGOPHARYNGITIS [None]
  - LYMPHADENOPATHY [None]
  - VIRAL INFECTION [None]
